FAERS Safety Report 23814786 (Version 1)
Quarter: 2024Q2

REPORT INFORMATION
  Report Type: Spontaneous
  Country: PL (occurrence: PL)
  Receive Date: 20240503
  Receipt Date: 20240503
  Transmission Date: 20240716
  Serious: Yes (Other)
  Sender: FDA-Public Use
  Company Number: PL-JNJFOC-20240469176

PATIENT
  Age: 66 Year
  Sex: Female

DRUGS (1)
  1. IMBRUVICA [Suspect]
     Active Substance: IBRUTINIB
     Indication: B-cell lymphoma
     Route: 048

REACTIONS (5)
  - Angiocentric lymphoma [Unknown]
  - Atypical lymphocytic lobular panniculitis [Unknown]
  - Soft tissue inflammation [Unknown]
  - Urinary tract infection [Unknown]
  - Bronchitis [Unknown]
